FAERS Safety Report 26145405 (Version 2)
Quarter: 2025Q4

REPORT INFORMATION
  Report Type: Report from Study
  Country: US (occurrence: US)
  Receive Date: 20251211
  Receipt Date: 20251222
  Transmission Date: 20260118
  Serious: Yes (Hospitalization)
  Sender: ALEXION PHARMACEUTICALS
  Company Number: US-AstraZeneca-CH-01010270A

PATIENT
  Age: 82 Year
  Sex: Male
  Weight: 92 kg

DRUGS (2)
  1. ACALABRUTINIB [Suspect]
     Active Substance: ACALABRUTINIB
     Indication: Mantle cell lymphoma
     Dosage: 100 MILLIGRAM, BID
     Route: 061
     Dates: start: 20250718
  2. METOPROLOL [Suspect]
     Active Substance: METOPROLOL
     Dosage: UNK
     Route: 065

REACTIONS (3)
  - Dyspnoea [Recovering/Resolving]
  - Heart rate decreased [Recovering/Resolving]
  - Pleural effusion [Recovering/Resolving]
